FAERS Safety Report 5740745-4 (Version None)
Quarter: 2008Q2

REPORT INFORMATION
  Report Type: 
  Country: None (occurrence: None)
  Receive Date: 20080515
  Receipt Date: 20080404
  Transmission Date: 20081010
  Serious: Yes (Life-Threatening, Hospitalization, Disabling, Other)
  Sender: FDA-Public Use
  Company Number: WAES 0804USA01469

PATIENT

DRUGS (4)
  1. TAB ISENTRESS [Suspect]
     Indication: HIV INFECTION
     Dosage: 400 MG/BID/PO
     Route: 048
     Dates: start: 20080317
  2. ZETIA [Concomitant]
  3. FENOFIBRATE [Concomitant]
  4. TENOFOVIR [Concomitant]

REACTIONS (1)
  - RENAL FAILURE ACUTE [None]
